FAERS Safety Report 7659753-1 (Version None)
Quarter: 2011Q3

REPORT INFORMATION
  Report Type: 
  Country: None (occurrence: None)
  Receive Date: 20110805
  Receipt Date: 20110729
  Transmission Date: 20111222
  Serious: Yes (Other)
  Sender: FDA-Public Use
  Company Number: PHHY2011JP70089

PATIENT
  Age: 69 Year
  Sex: Female

DRUGS (4)
  1. OXALIPLATIN [Suspect]
     Indication: RECTOSIGMOID CANCER
     Dosage: 85 MG/M2, UNK
     Route: 042
     Dates: start: 20090101
  2. BEVACIZUMAB [Suspect]
     Indication: RECTOSIGMOID CANCER
     Dosage: 2400 MG/M2, UNK
     Dates: start: 20090101
  3. ISOVORIN [Suspect]
     Indication: RECTOSIGMOID CANCER
     Dosage: 200 MG/M2, UNK
     Dates: start: 20090101
  4. FLUOROURACIL [Suspect]
     Indication: RECTOSIGMOID CANCER
     Dosage: 400 MG/M2, UNK
     Route: 040
     Dates: start: 20090101

REACTIONS (2)
  - DRUG INEFFECTIVE [None]
  - NEUROPATHY PERIPHERAL [None]
